FAERS Safety Report 5400875-3 (Version None)
Quarter: 2007Q3

REPORT INFORMATION
  Report Type: 
  Country: None (occurrence: None)
  Receive Date: 20070730
  Receipt Date: 20070702
  Transmission Date: 20080115
  Serious: No
  Sender: FDA-Public Use
  Company Number: A0650838A

PATIENT
  Age: 22 Year
  Sex: Female
  Weight: 67.7 kg

DRUGS (2)
  1. IMITREX [Suspect]
     Indication: MIGRAINE
     Dosage: 100MG SINGLE DOSE
     Route: 048
     Dates: start: 20070403, end: 20070403
  2. ORTHO EVRA [Concomitant]
     Indication: CONTRACEPTION
     Route: 062

REACTIONS (6)
  - FEELING ABNORMAL [None]
  - HEAD DISCOMFORT [None]
  - MUSCULOSKELETAL STIFFNESS [None]
  - NECK PAIN [None]
  - PAIN [None]
  - PARAESTHESIA [None]
